FAERS Safety Report 15502094 (Version 1)
Quarter: 2018Q4

REPORT INFORMATION
  Report Type: Report from Study
  Country: US (occurrence: US)
  Receive Date: 20181015
  Receipt Date: 20181015
  Transmission Date: 20190205
  Serious: No
  Sender: FDA-Public Use
  Company Number: US-AMGEN-USASL2018102592

PATIENT
  Age: 67 Year
  Sex: Female

DRUGS (1)
  1. KYPROLIS [Suspect]
     Active Substance: CARFILZOMIB
     Indication: PLASMA CELL MYELOMA
     Dosage: UNK, TWICE A WEEK FOR 3 WEEKS THEN 1 WEEK OFF
     Route: 042

REACTIONS (10)
  - Eye swelling [Recovered/Resolved]
  - Flushing [Recovered/Resolved]
  - Infusion site induration [Unknown]
  - Bone pain [Recovered/Resolved]
  - Infusion site erythema [Unknown]
  - Balance disorder [Unknown]
  - Fatigue [Unknown]
  - Back pain [Recovering/Resolving]
  - Swelling face [Unknown]
  - Peripheral swelling [Unknown]

NARRATIVE: CASE EVENT DATE: 201807
